FAERS Safety Report 6041089-6 (Version None)
Quarter: 2009Q1

REPORT INFORMATION
  Report Type: 
  Country: None (occurrence: None)
  Receive Date: 20090116
  Receipt Date: 20080911
  Transmission Date: 20090719
  Serious: No
  Sender: FDA-Public Use
  Company Number: US-BRISTOL-MYERS SQUIBB COMPANY-14305361

PATIENT
  Age: 13 Year
  Sex: Male

DRUGS (4)
  1. ABILIFY [Suspect]
     Indication: ASPERGER'S DISORDER
     Dosage: PREVIOUSLY FROM 11-FEB-2004 TO 18-APR-2008
     Route: 048
     Dates: start: 20080710
  2. BUSPAR [Concomitant]
  3. METFORMIN [Concomitant]
  4. TENEX [Concomitant]

REACTIONS (2)
  - PAPILLOEDEMA [None]
  - WEIGHT INCREASED [None]
